FAERS Safety Report 7770183-4 (Version None)
Quarter: 2011Q3

REPORT INFORMATION
  Report Type: 
  Country: None (occurrence: None)
  Receive Date: 20110922
  Receipt Date: 20110211
  Transmission Date: 20111222
  Serious: No
  Sender: FDA-Public Use
  Company Number: US-ASTRAZENECA-2011SE08348

PATIENT
  Age: 37 Year
  Sex: Male
  Weight: 154.2 kg

DRUGS (3)
  1. NEURONTIN [Concomitant]
  2. XANAX [Concomitant]
  3. SEROQUEL [Suspect]
     Indication: BIPOLAR DISORDER
     Route: 048
     Dates: start: 20030101, end: 20110209

REACTIONS (5)
  - INSOMNIA [None]
  - BACK PAIN [None]
  - MUSCULOSKELETAL PAIN [None]
  - DRUG DOSE OMISSION [None]
  - HEADACHE [None]
